FAERS Safety Report 8660459 (Version 4)
Quarter: 2014Q3

REPORT INFORMATION
  Report Type: Spontaneous
  Country: US (occurrence: US)
  Receive Date: 20120711
  Receipt Date: 20140819
  Transmission Date: 20150326
  Serious: Yes (Hospitalization, Disabling, Other)
  Sender: FDA-Public Use
  Company Number: US-009507513-2012SP036943

PATIENT
  Sex: Female
  Weight: 58.96 kg

DRUGS (1)
  1. NUVARING [Suspect]
     Active Substance: ETHINYL ESTRADIOL\ETONOGESTREL
     Indication: CONTRACEPTION
     Dosage: UNK
     Route: 067
     Dates: start: 200912, end: 20100728

REACTIONS (12)
  - Pulmonary embolism [Unknown]
  - Migraine [Not Recovered/Not Resolved]
  - Cough [Recovering/Resolving]
  - Thyroid disorder [Unknown]
  - Dehydration [Not Recovered/Not Resolved]
  - Female sterilisation [Recovered/Resolved]
  - Asthma [Not Recovered/Not Resolved]
  - Vomiting [Recovered/Resolved]
  - Meniscus injury [Unknown]
  - Heart rate irregular [Unknown]
  - Headache [Unknown]
  - Knee operation [Unknown]

NARRATIVE: CASE EVENT DATE: 201006
